FAERS Safety Report 21208240 (Version 4)
Quarter: 2022Q3

REPORT INFORMATION
  Report Type: Report from Study
  Country: CA (occurrence: None)
  Receive Date: 20220812
  Receipt Date: 20220830
  Transmission Date: 20221026
  Serious: Yes (Hospitalization)
  Sender: FDA-Public Use
  Company Number: CA-Merck Healthcare KGaA-9333855

PATIENT
  Age: 51 Year
  Sex: Male
  Weight: 97 kg

DRUGS (2)
  1. BAVENCIO [Suspect]
     Active Substance: AVELUMAB
     Indication: Transitional cell carcinoma
     Route: 042
     Dates: start: 20220322
  2. BAVENCIO [Suspect]
     Active Substance: AVELUMAB
     Route: 042
     Dates: start: 20220628

REACTIONS (6)
  - Myasthenia gravis [Recovering/Resolving]
  - Pruritus [Unknown]
  - Central nervous system lesion [Unknown]
  - Hydrocephalus [Unknown]
  - Influenza like illness [Unknown]
  - Candida infection [Unknown]

NARRATIVE: CASE EVENT DATE: 20220629
